FAERS Safety Report 9888255 (Version 2)
Quarter: 2014Q1

REPORT INFORMATION
  Report Type: Spontaneous
  Country: PL (occurrence: PL)
  Receive Date: 20140211
  Receipt Date: 20140211
  Transmission Date: 20141002
  Serious: Yes (Hospitalization, Other)
  Sender: FDA-Public Use
  Company Number: PL-SA-2014SA010158

PATIENT
  Age: 61 Year
  Sex: Female

DRUGS (3)
  1. ZOLPIDEM [Suspect]
     Indication: INSOMNIA
     Route: 065
  2. SIBUTRAMINE HYDROCHLORIDE [Interacting]
     Indication: OBESITY
     Route: 065
  3. SIBUTRAMINE HYDROCHLORIDE [Interacting]
     Indication: OBESITY
     Route: 065

REACTIONS (12)
  - Abnormal behaviour [Recovered/Resolved]
  - Drug interaction [Unknown]
  - Amnesia [Recovered/Resolved]
  - Disorientation [Recovered/Resolved]
  - Movement disorder [Recovered/Resolved]
  - Anxiety [Recovered/Resolved]
  - Depressed mood [Recovered/Resolved]
  - Sleep disorder [Recovered/Resolved]
  - Psychotic disorder [Recovered/Resolved]
  - Persecutory delusion [Recovered/Resolved]
  - Hallucination, auditory [Recovered/Resolved]
  - Depressed mood [Recovered/Resolved]
